FAERS Safety Report 15089614 (Version 12)
Quarter: 2023Q1

REPORT INFORMATION
  Report Type: Spontaneous
  Country: FR (occurrence: FR)
  Receive Date: 20180629
  Receipt Date: 20230329
  Transmission Date: 20230417
  Serious: Yes (Hospitalization, Other)
  Sender: FDA-Public Use
  Company Number: FR-AFSSAPS-RN20170875

PATIENT
  Age: 43 Year
  Sex: Male

DRUGS (54)
  1. ACETAMINOPHEN [Suspect]
     Active Substance: ACETAMINOPHEN
     Indication: Pain
     Dosage: 3 GRAM, ONCE A DAY (IF PAIN OR FEVER)
     Route: 048
     Dates: start: 2017, end: 2017
  2. ACETAMINOPHEN [Suspect]
     Active Substance: ACETAMINOPHEN
     Indication: Pyrexia
     Dosage: 1 GRAM
     Route: 065
     Dates: start: 2017, end: 2017
  3. AMIKACIN [Suspect]
     Active Substance: AMIKACIN
     Indication: Pain
     Dosage: UNK
     Route: 065
     Dates: start: 20170403
  4. AMIKACIN [Suspect]
     Active Substance: AMIKACIN
     Dosage: 80 MILLIGRAM, ONCE A DAY(20 MG, 4X/DAY ))
     Route: 042
     Dates: start: 20170403, end: 20170408
  5. AMIKACIN [Suspect]
     Active Substance: AMIKACIN
     Dosage: 80 MILLIGRAM, ONCE A DAY
     Route: 042
     Dates: start: 20170526, end: 20170529
  6. ACUPAN [Suspect]
     Active Substance: NEFOPAM HYDROCHLORIDE
     Indication: Pain
     Dosage: 20 MILLIGRAM, FOUR TIMES/DAY
     Route: 042
     Dates: start: 2017, end: 2017
  7. BACTRIM [Suspect]
     Active Substance: SULFAMETHOXAZOLE\TRIMETHOPRIM
     Indication: Pneumocystis jirovecii pneumonia
     Dosage: 800 MILLIGRAM, ONCE A DAY(800 MG,QD)
     Route: 048
     Dates: start: 201703, end: 20170526
  8. CELLCEPT [Suspect]
     Active Substance: MYCOPHENOLATE MOFETIL
     Indication: Prophylaxis against transplant rejection
     Dosage: 2000 MILLIGRAM, ONCE A DAY(2000 MG, QD)
     Route: 048
     Dates: start: 2017
  9. CANCIDAS [Suspect]
     Active Substance: CASPOFUNGIN ACETATE
     Indication: Fungal infection
     Dosage: 70 MILLIGRAM, ONCE A DAY(70 MG,QD)
     Route: 042
     Dates: start: 201703, end: 2017
  10. DITROPAN [Suspect]
     Active Substance: OXYBUTYNIN CHLORIDE
     Indication: Product used for unknown indication
     Dosage: 15 MILLIGRAM, ONCE A DAY(5 MG,TID)
     Route: 048
     Dates: start: 2017, end: 20170509
  11. EUPANTOL [Suspect]
     Active Substance: PANTOPRAZOLE SODIUM
     Indication: Gastrooesophageal reflux disease
     Dosage: 40 MILLIGRAM, ONCE A DAY(40 MG,QD)
     Route: 042
     Dates: start: 2017
  12. EUPANTOL [Suspect]
     Active Substance: PANTOPRAZOLE SODIUM
     Dosage: 600 MILLIGRAM, TWO TIMES A DAY
     Route: 042
     Dates: end: 20170430
  13. EUPANTOL [Suspect]
     Active Substance: PANTOPRAZOLE SODIUM
     Indication: Gastrooesophageal reflux disease
     Dosage: 40 MG, QD
     Route: 042
     Dates: start: 2017, end: 2017
  14. GAVISCON [Suspect]
     Active Substance: ALUMINUM HYDROXIDE\MAGNESIUM CARBONATE
     Indication: Gastrooesophageal reflux disease
     Dosage: 1 DOSAGE FORM, 3 TIMES A DAY(SI BESOIN, 3 DF, QD/PRN)
     Route: 048
     Dates: start: 2017, end: 2017
  15. GAVISCON [Suspect]
     Active Substance: ALUMINUM HYDROXIDE\MAGNESIUM CARBONATE
     Dosage: 3 DOSAGE FORM, ONCE A DAY
     Route: 048
     Dates: start: 2017, end: 2017
  16. HYDROCORTISONE [Suspect]
     Active Substance: HYDROCORTISONE
     Dosage: UNK
     Route: 065
  17. HYDROCORTISONE [Suspect]
     Active Substance: HYDROCORTISONE
     Dosage: UNK
  18. KEPPRA [Suspect]
     Active Substance: LEVETIRACETAM
     Indication: Epilepsy
     Dosage: 1000 MILLIGRAM, ONCE A DAY (500 MG, BID)
     Dates: start: 20170422
  19. MYCOPHENOLATE MOFETIL [Suspect]
     Active Substance: MYCOPHENOLATE MOFETIL
     Indication: Prophylaxis against transplant rejection
     Dosage: 1000 MILLIGRAM, TWO TIMES A DAY(1000 MG, BID, 1000 MG, 2X/DAY(ONE TABLET ONCE IN THE MORNING AND ONC
     Route: 048
     Dates: start: 2017
  20. NEORAL [Suspect]
     Active Substance: CYCLOSPORINE
     Indication: Prophylaxis against transplant rejection
     Dosage: 80 MILLIGRAM, ONCE A DAY (40 MG,BID)
     Dates: start: 2017, end: 2017
  21. SOLU-MEDROL [Suspect]
     Active Substance: METHYLPREDNISOLONE SODIUM SUCCINATE
     Indication: Product used for unknown indication
     Dosage: 160 MILLIGRAM, ONCE A DAY
     Route: 042
     Dates: start: 2017, end: 20170609
  22. PHLOROGLUCINOL\1,3,5-TRIMETHOXYBENZENE [Suspect]
     Active Substance: PHLOROGLUCINOL\1,3,5-TRIMETHOXYBENZENE
     Indication: Pain
     Dosage: 6 DOSAGE FORM, ONCE A DAY (SI DOULEUR ABDOMINALE, 6 DF, QD)
     Route: 048
     Dates: start: 2017, end: 2017
  23. AMINO ACIDS\DEXTROSE\ELECTROLYTES NOS\SOYBEAN OIL [Suspect]
     Active Substance: AMINO ACIDS\DEXTROSE\ELECTROLYTES NOS\SOYBEAN OIL
     Indication: Parenteral nutrition
     Dosage: 1920 MILLILITER, ONCE A DAY (80 ML, 24D, QH)
     Route: 042
     Dates: start: 2017, end: 2017
  24. RACECADOTRIL [Suspect]
     Active Substance: RACECADOTRIL
     Indication: Diarrhoea
     Dosage: 200 MILLIGRAM, ONCE A DAY
     Route: 065
     Dates: start: 2017
  25. RACECADOTRIL [Suspect]
     Active Substance: RACECADOTRIL
     Dosage: 600 MILLIGRAM, ONCE A DAY
     Route: 048
  26. CILASTATIN SODIUM\IMIPENEM [Suspect]
     Active Substance: CILASTATIN SODIUM\IMIPENEM
     Indication: Product used for unknown indication
     Dosage: 500 MILLIGRAM, 3 TIMES A DAY
     Route: 042
     Dates: start: 201703, end: 20170403
  27. URSODIOL [Suspect]
     Active Substance: URSODIOL
     Indication: Product used for unknown indication
     Dosage: 200 MILLIGRAM
     Route: 048
     Dates: start: 20170331
  28. LINEZOLID [Suspect]
     Active Substance: LINEZOLID
     Indication: Product used for unknown indication
     Dosage: 600 MILLIGRAM, TWO TIMES A DAY
     Route: 042
     Dates: start: 201703, end: 20170430
  29. ZERBAXA [Suspect]
     Active Substance: CEFTOLOZANE SULFATE\TAZOBACTAM SODIUM
     Indication: Cellulitis
     Dosage: 3 G, QD
     Route: 042
     Dates: start: 20170331
  30. GAVISCON [Suspect]
     Active Substance: ALUMINUM HYDROXIDE\MAGNESIUM CARBONATE
     Indication: Gastrooesophageal reflux disease
     Dosage: 1 DOSAGE FORM(1 DF, Z)
     Route: 048
     Dates: start: 2017
  31. MAGNESIUM ALGINATE\SODIUM ALGINATE [Suspect]
     Active Substance: MAGNESIUM ALGINATE\SODIUM ALGINATE
     Indication: Gastrooesophageal reflux disease
     Dosage: 1 DOSAGE FORM, 3 TIMES A DAY()1 DF,TID
     Route: 048
     Dates: start: 2017
  32. VALACYCLOVIR HYDROCHLORIDE [Suspect]
     Active Substance: VALACYCLOVIR HYDROCHLORIDE
     Indication: Prophylaxis
     Dosage: UNK (NON COMMUNIQU?E)
     Route: 048
     Dates: start: 20170504
  33. PHLOROGLUCINOL\1,3,5-TRIMETHOXYBENZENE [Suspect]
     Active Substance: PHLOROGLUCINOL\1,3,5-TRIMETHOXYBENZENE
     Indication: Pain
     Dosage: 2 DOSAGE FORM, ONCE A DAY(2 DF, Z)
     Dates: start: 2017
  34. PHLOROGLUCINOL\1,3,5-TRIMETHOXYBENZENE [Suspect]
     Active Substance: PHLOROGLUCINOL\1,3,5-TRIMETHOXYBENZENE
     Indication: Abdominal pain
     Dosage: 6 DOSAGE FORM, ONCE A DAY
     Route: 048
     Dates: start: 2017
  35. PHLOROGLUCINOL [Suspect]
     Active Substance: PHLOROGLUCINOL
     Indication: Pain
     Dosage: 2 DOSAGE FORM(2 DF, AS NEEDED (TWO TABLETS THREE TIMES DAILY IF ABDOMINAL PAIN))
     Route: 048
     Dates: start: 2017, end: 2017
  36. PHLOROGLUCINOL [Suspect]
     Active Substance: PHLOROGLUCINOL
     Indication: Abdominal pain
  37. AMIKACIN [Suspect]
     Active Substance: AMIKACIN
     Indication: Pain
     Dates: start: 20170526, end: 20170529
  38. SODIUM ALGINATE [Suspect]
     Active Substance: SODIUM ALGINATE
     Indication: Gastrooesophageal reflux disease
     Dosage: 1 DOSAGE FORM, Q8H
     Route: 048
     Dates: start: 2017
  39. AMIKACIN [Suspect]
     Active Substance: AMIKACIN
     Indication: Pain
     Dosage: 20 MG, 4X/DAY
     Dates: start: 20170403, end: 20170408
  40. URAPIDIL [Suspect]
     Active Substance: URAPIDIL
     Indication: Hypertension
     Dosage: 48 MILLIGRAM, ONCE A DAY(48 MG, QD, 48 MG, DAILY (2 MG PER HOUR))
     Route: 042
     Dates: start: 201703, end: 20170330
  41. URAPIDIL [Suspect]
     Active Substance: URAPIDIL
     Dosage: 2 MILLIGRAM 1 HOUR
     Route: 042
     Dates: start: 201703, end: 20170330
  42. AMIKACIN [Suspect]
     Active Substance: AMIKACIN
     Indication: Pain
     Route: 042
     Dates: start: 20170421, end: 20170424
  43. GANCICLOVIR [Suspect]
     Active Substance: GANCICLOVIR
     Indication: Prophylaxis
     Dosage: NON COMMUNIQU?E
     Dates: start: 20170330, end: 20170504
  44. GAVISCON [Suspect]
     Active Substance: ALUMINUM HYDROXIDE\MAGNESIUM CARBONATE
     Indication: Gastrooesophageal reflux disease
     Dosage: 3 DF, 3X/DAY  (IF NEEDED)
     Route: 048
     Dates: start: 2017, end: 2017
  45. PHLOROGLUCINOL\1,3,5-TRIMETHOXYBENZENE [Suspect]
     Active Substance: PHLOROGLUCINOL\1,3,5-TRIMETHOXYBENZENE
     Indication: Pain
     Route: 048
     Dates: start: 2017, end: 2017
  46. AMIKACIN [Suspect]
     Active Substance: AMIKACIN
     Indication: Pain
     Route: 042
     Dates: start: 20170607, end: 20170610
  47. RACECADOTRIL [Suspect]
     Active Substance: RACECADOTRIL
     Indication: Diarrhoea
     Dosage: 200 MG, TID
     Dates: start: 2017, end: 2017
  48. ACETAMINOPHEN [Suspect]
     Active Substance: ACETAMINOPHEN
     Indication: Pyrexia
  49. VANCOMYCIN [Concomitant]
     Active Substance: VANCOMYCIN
     Indication: Product used for unknown indication
     Dosage: UNK
     Dates: start: 20170529
  50. BISOPROLOL [Concomitant]
     Active Substance: BISOPROLOL
     Indication: Prophylaxis
     Dosage: UNK
     Route: 048
     Dates: start: 20170531
  51. RAMIPRIL [Concomitant]
     Active Substance: RAMIPRIL
     Indication: Prophylaxis against transplant rejection
     Dosage: 2000 MILLIGRAM, ONCE A DAY(2000 MG, QD)
     Route: 048
     Dates: start: 20170331
  52. ATOVAQUONE [Concomitant]
     Active Substance: ATOVAQUONE
     Indication: Product used for unknown indication
     Dosage: UNK
     Route: 065
     Dates: start: 20170526
  53. TARGOCID [Concomitant]
     Active Substance: TEICOPLANIN
     Indication: Product used for unknown indication
     Dosage: UNK
     Route: 065
     Dates: start: 20170524, end: 20170529
  54. AMLODIPINE BESYLATE [Concomitant]
     Active Substance: AMLODIPINE BESYLATE
     Indication: Epilepsy
     Dosage: 1000 MG, QD
     Route: 048
     Dates: start: 20170526, end: 20170531

REACTIONS (6)
  - Confusional state [Recovering/Resolving]
  - Amnesia [Recovering/Resolving]
  - Pancytopenia [Recovered/Resolved]
  - Pneumocystis jirovecii pneumonia [Unknown]
  - Cellulitis [Unknown]
  - Drug interaction [Unknown]

NARRATIVE: CASE EVENT DATE: 20170329
